FAERS Safety Report 11645244 (Version 3)
Quarter: 2016Q1

REPORT INFORMATION
  Report Type: Spontaneous
  Country: DE (occurrence: DE)
  Receive Date: 20151020
  Receipt Date: 20160115
  Transmission Date: 20160525
  Serious: Yes (Life-Threatening, Hospitalization, Other)
  Sender: FDA-Public Use
  Company Number: DE-GILEAD-2015-0177089

PATIENT
  Age: 54 Year
  Sex: Male

DRUGS (6)
  1. PANTOZOL [Concomitant]
     Active Substance: PANTOPRAZOLE SODIUM
  2. LOPERAMID [Concomitant]
     Active Substance: LOPERAMIDE
  3. ZYDELIG [Suspect]
     Active Substance: IDELALISIB
     Indication: CHRONIC LYMPHOCYTIC LEUKAEMIA
     Dosage: 150 MG SWITCH
     Route: 065
     Dates: start: 201502, end: 201510
  4. SALOFALK                           /00000301/ [Concomitant]
     Active Substance: MESALAMINE
  5. BUDENOFALK [Concomitant]
     Active Substance: BUDESONIDE
  6. L THYROXIN [Concomitant]
     Active Substance: LEVOTHYROXINE SODIUM

REACTIONS (14)
  - Diarrhoea [Recovering/Resolving]
  - Condition aggravated [Unknown]
  - Asthenia [Unknown]
  - Pneumonia [Unknown]
  - Vomiting [Recovering/Resolving]
  - Colitis [Recovering/Resolving]
  - Dehydration [Not Recovered/Not Resolved]
  - Cough [Not Recovered/Not Resolved]
  - Pyrexia [Recovering/Resolving]
  - Renal failure [Not Recovered/Not Resolved]
  - Drug ineffective [Unknown]
  - Gastrointestinal inflammation [Not Recovered/Not Resolved]
  - Lacrimation increased [Unknown]
  - Visual impairment [Unknown]

NARRATIVE: CASE EVENT DATE: 2015
